FAERS Safety Report 10025094 (Version 3)
Quarter: 2020Q4

REPORT INFORMATION
  Report Type: Spontaneous
  Country: US (occurrence: US)
  Receive Date: 20140320
  Receipt Date: 20201117
  Transmission Date: 20210113
  Serious: Yes (Other)
  Sender: FDA-Public Use
  Company Number: US-PFIZER INC-2014075079

PATIENT
  Age: 43 Year
  Sex: Female
  Weight: 68.03 kg

DRUGS (20)
  1. LIPITOR [Suspect]
     Active Substance: ATORVASTATIN CALCIUM
     Indication: BLOOD CHOLESTEROL INCREASED
     Dosage: 10 MG, 1X/DAY
     Dates: start: 1999, end: 20051110
  2. LIPITOR [Suspect]
     Active Substance: ATORVASTATIN CALCIUM
     Dosage: 10 MG
     Dates: start: 20021013
  3. LIPITOR [Suspect]
     Active Substance: ATORVASTATIN CALCIUM
     Dosage: 10 MG, 1X/DAY
     Dates: start: 20050511, end: 20080409
  4. LIPITOR [Suspect]
     Active Substance: ATORVASTATIN CALCIUM
     Dosage: 20 MG
     Dates: start: 20101223
  5. BAYCOL [Suspect]
     Active Substance: CERIVASTATIN SODIUM
     Indication: BLOOD CHOLESTEROL INCREASED
     Dosage: 0.3 MG-0.4 MG, 1X/DAY
     Dates: start: 20000424, end: 20000911
  6. LIPITOR [Suspect]
     Active Substance: ATORVASTATIN CALCIUM
     Dosage: 10 MG, 1X/DAY
     Dates: start: 20030113, end: 20030512
  7. LIPITOR [Suspect]
     Active Substance: ATORVASTATIN CALCIUM
     Dosage: 10 MG
     Dates: start: 20030512
  8. LIPITOR [Suspect]
     Active Substance: ATORVASTATIN CALCIUM
     Dosage: 20 MG
     Dates: start: 20100528
  9. BAYCOL [Suspect]
     Active Substance: CERIVASTATIN SODIUM
     Indication: HYPERLIPIDAEMIA
     Dosage: 0.3 MG-0.4 MG, 1X/DAY
     Dates: start: 19990830
  10. LIPITOR [Suspect]
     Active Substance: ATORVASTATIN CALCIUM
     Dosage: 20 MG
     Dates: start: 20110321
  11. LOVASTATIN. [Suspect]
     Active Substance: LOVASTATIN
     Indication: BLOOD CHOLESTEROL INCREASED
     Dosage: 40 MG, 1X/DAY
     Dates: start: 20110521, end: 201908
  12. LIPITOR [Suspect]
     Active Substance: ATORVASTATIN CALCIUM
     Indication: LOW DENSITY LIPOPROTEIN INCREASED
     Dosage: UNK, 1X/DAY (BEFORE 1999)
     Route: 048
  13. LIPITOR [Suspect]
     Active Substance: ATORVASTATIN CALCIUM
     Indication: HYPERLIPIDAEMIA
     Dosage: 10 MG, 1X/DAY
     Dates: start: 20000911, end: 20021013
  14. LIPITOR [Suspect]
     Active Substance: ATORVASTATIN CALCIUM
     Dosage: 10 MG
     Dates: start: 20010215
  15. LOVASTATIN. [Suspect]
     Active Substance: LOVASTATIN
     Dosage: 40 MG, UNK
     Dates: start: 201301
  16. LIPITOR [Suspect]
     Active Substance: ATORVASTATIN CALCIUM
     Dosage: 20 MG, 1X/DAY
     Dates: start: 20111223
  17. LOVASTATIN. [Suspect]
     Active Substance: LOVASTATIN
     Dosage: 40 MG, UNK
     Dates: start: 20130409
  18. LOVASTATIN. [Suspect]
     Active Substance: LOVASTATIN
     Dosage: 40 MG, 1X/DAY
     Dates: start: 201908
  19. LIPITOR [Suspect]
     Active Substance: ATORVASTATIN CALCIUM
     Dosage: 20 MG, 1X/DAY
     Dates: start: 20080409, end: 20101223
  20. LOVASTATIN. [Suspect]
     Active Substance: LOVASTATIN
     Dosage: 40 MG, UNK
     Dates: start: 20130808

REACTIONS (1)
  - Type 2 diabetes mellitus [Not Recovered/Not Resolved]

NARRATIVE: CASE EVENT DATE: 1999
